FAERS Safety Report 16067187 (Version 1)
Quarter: 2019Q1

REPORT INFORMATION
  Report Type: Report from Study
  Country: US (occurrence: US)
  Receive Date: 20190313
  Receipt Date: 20190313
  Transmission Date: 20190418
  Serious: Yes (Other)
  Sender: FDA-Public Use
  Company Number: US-SA-2016SA159413

PATIENT
  Age: 61 Year
  Sex: Female

DRUGS (11)
  1. ADDERALL [Suspect]
     Active Substance: AMPHETAMINE ASPARTATE\AMPHETAMINE SULFATE\DEXTROAMPHETAMINE SACCHARATE\DEXTROAMPHETAMINE SULFATE
     Dosage: 40 MG, QOD
  2. LYRICA [Concomitant]
     Active Substance: PREGABALIN
     Indication: SPINAL PAIN
  3. MODAFINIL. [Concomitant]
     Active Substance: MODAFINIL
     Indication: FATIGUE
     Dosage: 400 MG,QD
     Dates: start: 20160301
  4. ALEMTUZUMAB [Suspect]
     Active Substance: ALEMTUZUMAB
     Indication: MULTIPLE SCLEROSIS
     Dosage: 12 MG,QD
     Route: 041
     Dates: start: 20160815, end: 20160819
  5. ALEMTUZUMAB [Suspect]
     Active Substance: ALEMTUZUMAB
     Dosage: UNK UNK, QD
     Route: 041
     Dates: start: 20170823, end: 20170825
  6. ALPRAZOLAM. [Concomitant]
     Active Substance: ALPRAZOLAM
     Indication: ANXIETY
     Dosage: .5 MG,QD
     Dates: start: 20120210
  7. LORATADINE. [Concomitant]
     Active Substance: LORATADINE
     Indication: ANTIALLERGIC THERAPY
     Dosage: 10 MG,QD
     Dates: start: 20160811
  8. TIZANIDINE. [Concomitant]
     Active Substance: TIZANIDINE
     Indication: MUSCLE SPASTICITY
     Dosage: 12 MG,QD
     Dates: start: 20160601, end: 20160815
  9. LYRICA [Concomitant]
     Active Substance: PREGABALIN
     Indication: NEURALGIA
     Dosage: 600 MG,QD
     Dates: start: 20160715
  10. VALACICLOVIR [Concomitant]
     Active Substance: VALACYCLOVIR HYDROCHLORIDE
     Indication: HERPES VIRUS INFECTION
     Dosage: 500 MG,QD
     Dates: start: 20160811
  11. AMPYRA [Concomitant]
     Active Substance: DALFAMPRIDINE
     Indication: GAIT DISTURBANCE
     Dosage: 10 MG,QD
     Dates: start: 20140701

REACTIONS (46)
  - Coordination abnormal [Unknown]
  - Nausea [Recovering/Resolving]
  - Feeling abnormal [Unknown]
  - Condition aggravated [Recovered/Resolved]
  - Pain [Recovered/Resolved]
  - Ligament sprain [Recovered/Resolved]
  - Dysgraphia [Unknown]
  - Melanocytic naevus [Recovered/Resolved]
  - Anhidrosis [Unknown]
  - Syncope [Recovered/Resolved]
  - Muscle spasticity [Recovering/Resolving]
  - Gait disturbance [Not Recovered/Not Resolved]
  - Attention deficit/hyperactivity disorder [Unknown]
  - Feeling cold [Unknown]
  - Dysstasia [Recovered/Resolved]
  - Dehydration [Unknown]
  - Asthenia [Recovered/Resolved]
  - Pyrexia [Recovered/Resolved]
  - Fatigue [Recovering/Resolving]
  - Fatigue [Unknown]
  - Muscle spasms [Not Recovered/Not Resolved]
  - Feeling cold [Recovered/Resolved]
  - Asthenia [Recovered/Resolved]
  - Head injury [Recovered/Resolved]
  - Anal incontinence [Unknown]
  - White blood cell count abnormal [Unknown]
  - Fall [Recovered/Resolved]
  - Urinary incontinence [Unknown]
  - Chills [Recovered/Resolved]
  - Dysgraphia [Not Recovered/Not Resolved]
  - Memory impairment [Unknown]
  - Urine output increased [Unknown]
  - Malaise [Recovering/Resolving]
  - Pyrexia [Unknown]
  - Condition aggravated [Unknown]
  - Muscle spasms [Recovered/Resolved]
  - Malaise [Recovered/Resolved]
  - Tremor [Unknown]
  - Fall [Unknown]
  - Limb discomfort [Not Recovered/Not Resolved]
  - Pruritus [Recovered/Resolved]
  - Skin discolouration [Unknown]
  - Asthenia [Unknown]
  - Mobility decreased [Unknown]
  - Influenza like illness [Recovered/Resolved]
  - Multiple sclerosis [Unknown]

NARRATIVE: CASE EVENT DATE: 2016
